FAERS Safety Report 5170110-2 (Version None)
Quarter: 2006Q4

REPORT INFORMATION
  Report Type: 
  Country: None (occurrence: None)
  Receive Date: 20061201
  Receipt Date: 20061127
  Transmission Date: 20070319
  Serious: Yes (Death)
  Sender: FDA-Public Use
  Company Number: 2006BH014644

PATIENT
  Age: 79 Year
  Sex: Male

DRUGS (12)
  1. PROMETHAZINE [Suspect]
     Indication: NAUSEA
     Dosage: 12.5 MG; ONCE; IVBOL
     Route: 040
     Dates: start: 20061025, end: 20061025
  2. ESOMEPRAZOLE MAGNESIUM [Concomitant]
  3. ZOSYN [Concomitant]
  4. VANCOMYCIN [Concomitant]
  5. METOPROLOL SUCCINATE [Concomitant]
  6. INSULIN [Concomitant]
  7. HEPARIN [Concomitant]
  8. METOPROLOL SUCCINATE EXTENDED RELEASE [Concomitant]
  9. SODIUM CHLORIDE 0.9% [Concomitant]
  10. DEXAMETHASONE [Concomitant]
  11. COSYNTROPIN [Concomitant]
  12. ASPIRIN [Concomitant]

REACTIONS (9)
  - ACUTE MYOCARDIAL INFARCTION [None]
  - ANOXIC ENCEPHALOPATHY [None]
  - APNOEA [None]
  - BRAIN DEATH [None]
  - BRAIN OEDEMA [None]
  - CARDIO-RESPIRATORY ARREST [None]
  - ISCHAEMIA [None]
  - PULMONARY OEDEMA [None]
  - PULSE ABSENT [None]
